FAERS Safety Report 7608187-4 (Version None)
Quarter: 2011Q3

REPORT INFORMATION
  Report Type: 
  Country: None (occurrence: None)
  Receive Date: 20110712
  Receipt Date: 20110429
  Transmission Date: 20111222
  Serious: No
  Sender: FDA-Public Use
  Company Number: DL2011-0326

PATIENT
  Age: 29 Year
  Sex: Female

DRUGS (2)
  1. MISOPROSTOL [Suspect]
     Dosage: 800 MCG,VAGINAL
     Route: 067
     Dates: start: 20110401
  2. MIFEPRISTONE (MIFEPREX) [Suspect]
     Indication: ABORTION INDUCED
     Dosage: 200 MG,ORAL
     Route: 048
     Dates: start: 20110330

REACTIONS (1)
  - ABORTION INCOMPLETE [None]
